FAERS Safety Report 19947716 (Version 2)
Quarter: 2021Q4

REPORT INFORMATION
  Report Type: Spontaneous
  Country: DE (occurrence: DE)
  Receive Date: 20211012
  Receipt Date: 20211104
  Transmission Date: 20220303
  Serious: Yes (Hospitalization)
  Sender: FDA-Public Use
  Company Number: DE-ADRED-06520-01

PATIENT
  Age: 82 Year
  Sex: Female
  Weight: 89 kg

DRUGS (13)
  1. BISOPROLOL [Suspect]
     Active Substance: BISOPROLOL
     Indication: Product used for unknown indication
     Dosage: 5 MG, 1-0-1-0, TABLETTEN
  2. INSULIN GLULISINE [Suspect]
     Active Substance: INSULIN GLULISINE
     Indication: Product used for unknown indication
     Dosage: 1 IE, 18-13-16-0, INJEKTIONS-/INFUSIONSL?SUNG
     Route: 058
  3. INSULIN DETEMIR [Suspect]
     Active Substance: INSULIN DETEMIR
     Indication: Product used for unknown indication
     Dosage: 1 INTERNATIONAL UNIT (1IU, 0-0-32-0, SOLUTION FOR INJECTION/INFUSION)
     Route: 058
  4. INSULIN LISPRO [Suspect]
     Active Substance: INSULIN LISPRO
     Indication: Product used for unknown indication
     Dosage: UNK (DEMAND, SOLUTION FOR INJECTION/INFUSION)
     Route: 058
  5. URAPIDIL [Concomitant]
     Active Substance: URAPIDIL
     Dosage: 30 MILLIGRAM (30 MG, 1-0-1-0, SUSTAINED-RELEASE CAPSULES)
     Route: 048
  6. METAMIZOL                          /06276701/ [Concomitant]
     Dosage: 500 MG, BEDARF, TABLETTEN
     Route: 048
  7. PANTOPRAZOL                        /01263201/ [Concomitant]
     Dosage: 40 MG, 1-0-0-0, TABLETTEN
     Route: 048
  8. RAMIPRIL [Concomitant]
     Active Substance: RAMIPRIL
     Dosage: 5 MG, 1-0-1-0, TABLETTEN
     Route: 048
  9. ATORVASTATIN [Concomitant]
     Active Substance: ATORVASTATIN
     Dosage: 80 MG, 0-0-1-0, TABLETTEN
     Route: 048
  10. TORSEMIDE [Concomitant]
     Active Substance: TORSEMIDE
     Dosage: 10 MG, 1-1-0-0, TABLETTEN
     Route: 048
  11. AMLODIPIN                          /00972401/ [Concomitant]
     Dosage: 5 MG, 1-0-1-0, TABLETTEN
     Route: 048
  12. NALOXONE HYDROCHLORIDE\TILIDINE HYDROCHLORIDE [Concomitant]
     Active Substance: NALOXONE HYDROCHLORIDE\TILIDINE HYDROCHLORIDE
     Dosage: 4|50 MG, 0-0-1-0, TABLETTEN
     Route: 048
  13. ASPIRIN [Concomitant]
     Active Substance: ASPIRIN
     Dosage: 100 MG, 1-0-0-0, TABLETTEN
     Route: 048

REACTIONS (5)
  - Depressed level of consciousness [Unknown]
  - Hypoglycaemia [Unknown]
  - Product prescribing error [Unknown]
  - Product administration error [Unknown]
  - Medication error [Unknown]
